FAERS Safety Report 23185531 (Version 3)
Quarter: 2024Q1

REPORT INFORMATION
  Report Type: Spontaneous
  Country: US (occurrence: US)
  Receive Date: 20231115
  Receipt Date: 20240102
  Transmission Date: 20240410
  Serious: Yes (Hospitalization)
  Sender: FDA-Public Use
  Company Number: US-JNJFOC-20231103851

PATIENT
  Age: 69 Year
  Sex: Male

DRUGS (10)
  1. OPSUMIT [Suspect]
     Active Substance: MACITENTAN
     Indication: Product used for unknown indication
     Route: 048
     Dates: start: 20231030
  2. ELIQUIS [Concomitant]
     Active Substance: APIXABAN
     Indication: Anticoagulant therapy
     Dates: start: 202307
  3. METOPROLOL [Concomitant]
     Active Substance: METOPROLOL
     Indication: Cardiac disorder
     Dosage: 1 YEAR
  4. FENOFIBRATE [Concomitant]
     Active Substance: FENOFIBRATE
     Dosage: 1 YEAR
  5. LISINOPRIL [Concomitant]
     Active Substance: LISINOPRIL
     Dosage: 2 YEARS
  6. FLECAINIDE [Concomitant]
     Active Substance: FLECAINIDE
     Dosage: 2 YEARS
  7. ATROVASTATIN AWA [Concomitant]
     Dosage: 4 YEARS
  8. FUROSEMIDE [Concomitant]
     Active Substance: FUROSEMIDE
     Indication: Fluid retention
     Dosage: 1 YEAR
  9. MICRO K [Concomitant]
     Dosage: 1 YEAR
  10. COVID-19 VACCINE [Concomitant]

REACTIONS (3)
  - Hospitalisation [Unknown]
  - Weight increased [Unknown]
  - Product dose omission issue [Unknown]
